FAERS Safety Report 9682870 (Version 2)
Quarter: 2013Q4

REPORT INFORMATION
  Report Type: Report from Study
  Country: US (occurrence: US)
  Receive Date: 20131112
  Receipt Date: 20131112
  Transmission Date: 20140711
  Serious: Yes (Other)
  Sender: FDA-Public Use
  Company Number: US-ROCHE-1295940

PATIENT
  Age: 11 Year
  Sex: Male
  Weight: 42.5 kg

DRUGS (9)
  1. NUTROPIN [Suspect]
     Indication: GROWTH RETARDATION
     Dosage: NIGHTLY
     Route: 058
     Dates: start: 20130819
  2. NUTROPIN [Suspect]
     Dosage: NIGHTLY
     Route: 058
     Dates: start: 201301, end: 20130425
  3. FOCALIN [Suspect]
     Indication: ATTENTION DEFICIT/HYPERACTIVITY DISORDER
     Route: 048
     Dates: end: 20130114
  4. FOCALIN [Suspect]
     Route: 048
     Dates: end: 20121228
  5. CLARITIN [Concomitant]
     Route: 050
  6. LUVOX [Concomitant]
     Route: 048
  7. ADDERALL XR [Concomitant]
     Route: 048
  8. RISPERDAL [Concomitant]
     Route: 048
  9. LISDEXAMFETAMINE [Concomitant]
     Route: 065

REACTIONS (7)
  - Headache [Recovered/Resolved]
  - Drug dose omission [Unknown]
  - Gait disturbance [Unknown]
  - Shoulder deformity [Unknown]
  - Exostosis [Unknown]
  - Scoliosis [Unknown]
  - Otitis media [Unknown]
